FAERS Safety Report 8473581-9 (Version None)
Quarter: 2012Q2

REPORT INFORMATION
  Report Type: 
  Country: None (occurrence: None)
  Receive Date: 20120628
  Receipt Date: 20110712
  Transmission Date: 20120825
  Serious: Yes (Other)
  Sender: FDA-Public Use
  Company Number: US-MYLANLABS-2011S1012290

PATIENT
  Age: 54 Year
  Sex: Female

DRUGS (6)
  1. CLOZAPINE [Suspect]
     Indication: SCHIZOPHRENIA, PARANOID TYPE
     Route: 048
     Dates: start: 20101022, end: 20110328
  2. FLONASE [Concomitant]
  3. LITHIUM CARBONATE [Concomitant]
     Route: 048
  4. BUSPIRONE HCL [Concomitant]
     Route: 048
  5. CLARITIN /00917501/ [Concomitant]
  6. CLONAZEPAM [Concomitant]
     Route: 048

REACTIONS (2)
  - LEUKOPENIA [None]
  - GRANULOCYTOPENIA [None]
